FAERS Safety Report 17239558 (Version 1)
Quarter: 2020Q1

REPORT INFORMATION
  Report Type: Spontaneous
  Country: US (occurrence: US)
  Receive Date: 20200106
  Receipt Date: 20200106
  Transmission Date: 20200409
  Serious: No
  Sender: FDA-Public Use
  Company Number: US-ROCHE-2270838

PATIENT

DRUGS (2)
  1. GAZYVA [Suspect]
     Active Substance: OBINUTUZUMAB
     Indication: MANTLE CELL LYMPHOMA
     Route: 042
  2. REVLIMID [Concomitant]
     Active Substance: LENALIDOMIDE
     Indication: MANTLE CELL LYMPHOMA

REACTIONS (1)
  - Thrombocytopenia [Unknown]
